FAERS Safety Report 21659438 (Version 3)
Quarter: 2023Q2

REPORT INFORMATION
  Report Type: Spontaneous
  Country: US (occurrence: US)
  Receive Date: 20221129
  Receipt Date: 20230629
  Transmission Date: 20230722
  Serious: No
  Sender: FDA-Public Use
  Company Number: US-SA-SAC20221128001126

PATIENT
  Age: 70 Year
  Sex: Female
  Weight: 74.4 kg

DRUGS (4)
  1. CAPRELSA [Suspect]
     Active Substance: VANDETANIB
     Indication: Thyroid cancer
     Dosage: 200 MG, QD
     Route: 048
     Dates: start: 20221024
  2. LISINOPRIL [Interacting]
     Active Substance: LISINOPRIL
     Dosage: UNK
  3. HYDROCHLOROTHIAZIDE [Concomitant]
     Active Substance: HYDROCHLOROTHIAZIDE
     Dosage: UNK
  4. FLUCONAZOLE [Concomitant]
     Active Substance: FLUCONAZOLE
     Indication: Fungal infection
     Dosage: UNK

REACTIONS (9)
  - Cough [Unknown]
  - Drug interaction [Unknown]
  - Fungal infection [Unknown]
  - Chills [Unknown]
  - Rash macular [Unknown]
  - Hypertension [Unknown]
  - Rash [Unknown]
  - Diarrhoea [Unknown]
  - Alopecia [Unknown]

NARRATIVE: CASE EVENT DATE: 20220101
